FAERS Safety Report 6320561-5 (Version None)
Quarter: 2009Q3

REPORT INFORMATION
  Report Type: 
  Country: None (occurrence: None)
  Receive Date: 20090822
  Receipt Date: 20081113
  Transmission Date: 20100115
  Serious: No
  Sender: FDA-Public Use
  Company Number: US-ABBOTT-08P-163-0487457-00

PATIENT
  Sex: Male

DRUGS (7)
  1. NIASPAN [Suspect]
     Indication: BLOOD TRIGLYCERIDES INCREASED
     Dosage: EVERY NIGHT
     Dates: start: 20081109
  2. IBUPROFEN [Concomitant]
     Indication: FLUSHING
     Dates: start: 20081109
  3. IBUPROFEN [Concomitant]
     Indication: PRURITUS
  4. ASPIRIN [Concomitant]
     Indication: FLUSHING
     Dates: start: 20081110
  5. ASPIRIN [Concomitant]
     Indication: PRURITUS
  6. HYZAAR [Concomitant]
     Indication: DRUG USE FOR UNKNOWN INDICATION
  7. SUPPLEMENTS [Concomitant]
     Indication: DRUG USE FOR UNKNOWN INDICATION

REACTIONS (3)
  - FLUSHING [None]
  - PRURITUS [None]
  - RASH MACULAR [None]
